FAERS Safety Report 19800057 (Version 1)
Quarter: 2021Q3

REPORT INFORMATION
  Report Type: Spontaneous
  Country: AU (occurrence: AU)
  Receive Date: 20210907
  Receipt Date: 20210907
  Transmission Date: 20211014
  Serious: Yes (Other)
  Sender: FDA-Public Use
  Company Number: AU-TAKEDA-2021TUS054188

PATIENT
  Age: 41 Year
  Sex: Male
  Weight: 92 kg

DRUGS (16)
  1. FACTOR VIII INHIBITOR BYPASSING FRACTION [Suspect]
     Active Substance: ANTI-INHIBITOR COAGULANT COMPLEX
     Dosage: 12000 INTERNATIONAL UNIT
     Route: 065
  2. CELECOXIB. [Concomitant]
     Active Substance: CELECOXIB
     Dosage: 200 MILLIGRAM, QD
     Route: 065
  3. AMLODIPINE [Concomitant]
     Active Substance: AMLODIPINE BESYLATE
     Dosage: 5 MILLIGRAM, QD
     Route: 065
  4. TRANEXAMIC ACID. [Concomitant]
     Active Substance: TRANEXAMIC ACID
     Dosage: 1 GRAM, TID
     Route: 065
  5. DARBEPOETIN ALFA [Concomitant]
     Active Substance: DARBEPOETIN ALFA
     Dosage: 40 MICROGRAM, SINGLE
     Route: 065
  6. PERINDOPRIL [Concomitant]
     Active Substance: PERINDOPRIL
     Dosage: 10 MILLIGRAM, QD
     Route: 065
  7. FACTOR VIII INHIBITOR BYPASSING FRACTION [Suspect]
     Active Substance: ANTI-INHIBITOR COAGULANT COMPLEX
     Dosage: 9000 INTERNATIONAL UNIT
     Route: 065
  8. HEMLIBRA [Suspect]
     Active Substance: EMICIZUMAB-KXWH
     Indication: PROPHYLAXIS
     Dosage: 1.5 MILLIGRAM/KILOGRAM, 1/WEEK
     Route: 058
  9. PARACETAMOL [Concomitant]
     Active Substance: ACETAMINOPHEN
     Dosage: 1 GRAM, QID
     Route: 065
  10. FACTOR VIII INHIBITOR BYPASSING FRACTION [Suspect]
     Active Substance: ANTI-INHIBITOR COAGULANT COMPLEX
     Dosage: 6000 INTERNATIONAL UNIT, TID
     Route: 065
  11. HEMLIBRA [Suspect]
     Active Substance: EMICIZUMAB-KXWH
     Indication: HAEMOPHILIA A WITH ANTI FACTOR VIII
     Dosage: 3 MILLIGRAM/KILOGRAM, 1/WEEK
     Route: 058
  12. FACTOR VIII INHIBITOR BYPASSING FRACTION [Suspect]
     Active Substance: ANTI-INHIBITOR COAGULANT COMPLEX
     Indication: HAEMOPHILIA A WITH ANTI FACTOR VIII
     Dosage: 4500 INTERNATIONAL UNIT, 3/WEEK
     Route: 065
  13. AMITRIPTYLINE HYDROCHLORIDE. [Concomitant]
     Active Substance: AMITRIPTYLINE HYDROCHLORIDE
     Dosage: 75 MILLIGRAM, QD
     Route: 065
  14. IRON POLYMALTOSE [Concomitant]
     Active Substance: IRON POLYMALTOSE
     Dosage: 200 MILLIGRAM
     Route: 065
  15. FACTOR VIII INHIBITOR BYPASSING FRACTION [Suspect]
     Active Substance: ANTI-INHIBITOR COAGULANT COMPLEX
     Indication: PROPHYLAXIS
     Dosage: 228 INTERNATIONAL UNIT, QD
     Route: 065
  16. METHADONE [Concomitant]
     Active Substance: METHADONE HYDROCHLORIDE
     Dosage: 80 MILLIGRAM, QD
     Route: 065

REACTIONS (3)
  - Thrombotic microangiopathy [Unknown]
  - Overdose [Unknown]
  - Treatment noncompliance [Unknown]
